FAERS Safety Report 10681646 (Version 2)
Quarter: 2015Q1

REPORT INFORMATION
  Report Type: Report from Study
  Country: CA (occurrence: CA)
  Receive Date: 20141230
  Receipt Date: 20150114
  Transmission Date: 20150720
  Serious: Yes (Other)
  Sender: FDA-Public Use
  Company Number: CA-BEH-2014047615

PATIENT
  Age: 57 Year
  Sex: Male

DRUGS (6)
  1. FIBRINOGEN [Suspect]
     Active Substance: FIBRINOGEN HUMAN
     Indication: RESUSCITATION
     Dosage: RAPID PUSH OVER 6 MINUTES (1 GRAM PER MINUTE).
     Route: 042
     Dates: start: 20141103
  2. IRBESARTAN. [Concomitant]
     Active Substance: IRBESARTAN
     Dosage: QAM
     Route: 048
  3. VITAMIN D [Concomitant]
     Active Substance: CHOLECALCIFEROL
     Route: 048
  4. AMLODIPINE/ATORVASTATIN 5MG/20MG [Concomitant]
     Dosage: QPM
     Route: 048
  5. FIBRINOGEN [Suspect]
     Active Substance: FIBRINOGEN HUMAN
     Indication: INJURY
     Dosage: RAPID PUSH OVER 6 MINUTES (1 GRAM PER MINUTE).
     Route: 042
     Dates: start: 20141103
  6. VITAMIN B [Concomitant]
     Active Substance: VITAMIN B
     Route: 048

REACTIONS (6)
  - Pneumothorax [Recovered/Resolved]
  - Rash [Recovered/Resolved]
  - Haemothorax [Recovered/Resolved]
  - Atelectasis [Recovered/Resolved]
  - Lung consolidation [Recovered/Resolved]
  - Oedema [Recovered/Resolved]

NARRATIVE: CASE EVENT DATE: 20141106
